FAERS Safety Report 6554807-5 (Version None)
Quarter: 2010Q1

REPORT INFORMATION
  Report Type: 
  Country: None (occurrence: None)
  Receive Date: 20100127
  Receipt Date: 20100120
  Transmission Date: 20100710
  Serious: Yes (Hospitalization)
  Sender: FDA-Public Use
  Company Number: FR-RB-007990-07

PATIENT
  Age: 41 Year
  Sex: Female

DRUGS (1)
  1. SUBUTEX [Suspect]
     Dosage: 3 INTAKES DAILY-NO FURTHER DOSING DETAILS KNOWN
     Route: 042

REACTIONS (3)
  - INCORRECT ROUTE OF DRUG ADMINISTRATION [None]
  - INTERVERTEBRAL DISCITIS [None]
  - SUBSTANCE ABUSE [None]
